FAERS Safety Report 21593684 (Version 1)
Quarter: 2022Q4

REPORT INFORMATION
  Report Type: Report from Study
  Country: US (occurrence: US)
  Receive Date: 20221115
  Receipt Date: 20221115
  Transmission Date: 20230113
  Serious: Yes (Other)
  Sender: FDA-Public Use
  Company Number: US-MALLINCKRODT-T202205543

PATIENT
  Sex: Male

DRUGS (16)
  1. CORTICOTROPIN [Suspect]
     Active Substance: CORTICOTROPIN
     Indication: Infantile spasms
     Dosage: 32 UNITS, EVERY 24 HOUR FOR 1 DAY
     Route: 030
     Dates: start: 20220908, end: 20220909
  2. CORTICOTROPIN [Suspect]
     Active Substance: CORTICOTROPIN
     Dosage: 0.3 MILLILITER (24 UNITS TOTAL), QD
     Route: 030
     Dates: start: 20221023, end: 20221029
  3. CORTICOTROPIN [Suspect]
     Active Substance: CORTICOTROPIN
     Dosage: 0.15 MILLILITER (12UNITS TOTAL), DAILY
     Route: 030
     Dates: start: 20221030
  4. PYRIDOXINE [Concomitant]
     Active Substance: PYRIDOXINE
     Indication: Product used for unknown indication
     Dosage: 100MG/2.5ML
     Route: 065
  5. PEPCID COMPLETE [Concomitant]
     Active Substance: CALCIUM CARBONATE\FAMOTIDINE\MAGNESIUM HYDROXIDE
     Indication: Product used for unknown indication
     Dosage: UNK, CHE 10-800-1
     Route: 065
  6. PEPCID [Concomitant]
     Active Substance: FAMOTIDINE
     Indication: Product used for unknown indication
     Dosage: 0.430 MILLILITER (3.2 MG TOTAL), BID
     Route: 048
     Dates: start: 20220908, end: 20221010
  7. TOPAMAX [Concomitant]
     Active Substance: TOPIRAMATE
     Indication: Product used for unknown indication
     Dosage: 37.5 MILLIGRAM FOR 5 DAYS
     Route: 048
     Dates: start: 20221007, end: 20221011
  8. TOPAMAX [Concomitant]
     Active Substance: TOPIRAMATE
     Dosage: 37.5 MILLIGRAM, BID
     Route: 048
     Dates: start: 20221012
  9. ORAPRED [Concomitant]
     Active Substance: PREDNISOLONE SODIUM PHOSPHATE
     Indication: Product used for unknown indication
     Dosage: 15MG/5ML (STOPPED)
     Route: 065
  10. CEFTRIAXONE [Concomitant]
     Active Substance: CEFTRIAXONE
     Indication: Sepsis
     Dosage: UNK
     Route: 065
     Dates: start: 202210
  11. CLINDAMYCIN [Concomitant]
     Active Substance: CLINDAMYCIN
     Indication: Pneumonia aspiration
     Dosage: UNK (48 HOURS)
     Route: 065
  12. ATIVAN [Concomitant]
     Active Substance: LORAZEPAM
     Indication: Sedation
     Dosage: UNK
     Route: 065
  13. TOPIRAMATE [Concomitant]
     Active Substance: TOPIRAMATE
     Indication: Product used for unknown indication
  14. VITAMIN D2 [Concomitant]
     Active Substance: ERGOCALCIFEROL
     Indication: Product used for unknown indication
     Dosage: 0.25 MILLILITER (2000 UNITS), DAILY
     Route: 048
     Dates: start: 20221022
  15. HYDRALAZINE [Concomitant]
     Active Substance: HYDRALAZINE HYDROCHLORIDE
     Indication: Hypertension
     Dosage: UNK (2 DOSES)
     Route: 065
  16. ECONAZOLE NITRATE [Concomitant]
     Active Substance: ECONAZOLE NITRATE
     Indication: Product used for unknown indication
     Dosage: UNK
     Route: 065

REACTIONS (9)
  - Hypophosphataemia [Not Recovered/Not Resolved]
  - Hypokalaemia [Not Recovered/Not Resolved]
  - Immunodeficiency [Not Recovered/Not Resolved]
  - Selective eating disorder [Recovering/Resolving]
  - Enteral nutrition [Not Recovered/Not Resolved]
  - Seizure [Unknown]
  - Dermatitis diaper [Recovering/Resolving]
  - Viral infection [Unknown]
  - Nasopharyngitis [Not Recovered/Not Resolved]

NARRATIVE: CASE EVENT DATE: 20220101
